FAERS Safety Report 10754696 (Version 2)
Quarter: 2015Q1

REPORT INFORMATION
  Report Type: Spontaneous
  Country: US (occurrence: US)
  Receive Date: 20150202
  Receipt Date: 20150303
  Transmission Date: 20150721
  Serious: No
  Sender: FDA-Public Use
  Company Number: US-PFIZER INC-2015038910

PATIENT
  Age: 58 Year
  Sex: Male
  Weight: 91 kg

DRUGS (1)
  1. DEPO-TESTOSTERONE [Suspect]
     Active Substance: TESTOSTERONE CYPIONATE
     Indication: BLOOD TESTOSTERONE DECREASED
     Dosage: 0.75 ML, WEEKLY
     Route: 030
     Dates: start: 201201

REACTIONS (3)
  - Product deposit [Recovered/Resolved]
  - Asthenia [Recovered/Resolved]
  - Poor quality drug administered [Recovered/Resolved]
